FAERS Safety Report 4927219-5 (Version None)
Quarter: 2006Q1

REPORT INFORMATION
  Report Type: 
  Country: None (occurrence: None)
  Receive Date: 20060228
  Receipt Date: 20050203
  Transmission Date: 20060701
  Serious: No
  Sender: FDA-Public Use
  Company Number: US-GLAXOSMITHKLINE-A0543722A

PATIENT
  Age: 66 Year
  Sex: Female
  Weight: 78.2 kg

DRUGS (2)
  1. IMITREX [Suspect]
     Indication: MIGRAINE
     Dosage: 6MG SINGLE DOSE
     Route: 042
     Dates: start: 20050203
  2. NO CONCURRENT MEDICATION [Concomitant]

REACTIONS (3)
  - BLOOD PRESSURE INCREASED [None]
  - INCORRECT ROUTE OF DRUG ADMINISTRATION [None]
  - INJECTION SITE PRURITUS [None]
